FAERS Safety Report 21284214 (Version 2)
Quarter: 2022Q3

REPORT INFORMATION
  Report Type: Report from Study
  Country: CA (occurrence: CA)
  Receive Date: 20220902
  Receipt Date: 20220912
  Transmission Date: 20221026
  Serious: Yes (Other)
  Sender: FDA-Public Use
  Company Number: CA-JNJFOC-20220663670

PATIENT
  Age: 73 Year
  Sex: Female
  Weight: 80 kg

DRUGS (1)
  1. REMICADE [Suspect]
     Active Substance: INFLIXIMAB
     Indication: Psoriasis
     Dosage: 5 MG/KG, THE PATIENT HAD RECEIVED TREATMENT ON 30/DEC/2013 AND 03-FEB-2022.
     Route: 040
     Dates: start: 20131116

REACTIONS (9)
  - Knee arthroplasty [Unknown]
  - Knee operation [Recovering/Resolving]
  - Balance disorder [Unknown]
  - COVID-19 [Recovering/Resolving]
  - Faeces soft [Unknown]
  - Defaecation urgency [Unknown]
  - Loss of personal independence in daily activities [Unknown]
  - Fall [Unknown]
  - Psoriasis [Recovering/Resolving]

NARRATIVE: CASE EVENT DATE: 20220601
